FAERS Safety Report 7024234-5 (Version None)
Quarter: 2010Q4

REPORT INFORMATION
  Report Type: 
  Country: None (occurrence: None)
  Receive Date: 20101001
  Receipt Date: 20100928
  Transmission Date: 20110411
  Serious: Yes (Life-Threatening, Hospitalization)
  Sender: FDA-Public Use
  Company Number: DE-CELGENEUS-062-21880-10082887

PATIENT
  Age: 67 Year
  Sex: Male
  Weight: 70 kg

DRUGS (9)
  1. REVLIMID [Suspect]
     Route: 048
     Dates: start: 20100708
  2. METOPROLOL TARTRATE [Concomitant]
     Indication: HYPERTENSION
     Route: 048
  3. METOPROLOL TARTRATE [Concomitant]
     Indication: HYPERTONIA
     Route: 051
  4. METOPROLOL TARTRATE [Concomitant]
     Route: 065
  5. CLEXANE [Concomitant]
     Indication: THROMBOSIS PROPHYLAXIS
     Route: 058
  6. CALCIFEROL [Concomitant]
     Indication: OSTEOPOROSIS
     Route: 048
  7. RAMILION [Concomitant]
     Indication: HYPERTONIA
     Route: 048
  8. SALBUTAMOL [Concomitant]
     Indication: PRODUCT USED FOR UNKNOWN INDICATION
     Route: 065
  9. CALCIUM [Concomitant]
     Indication: OSTEOPOROSIS
     Route: 065

REACTIONS (4)
  - ATRIAL FIBRILLATION [None]
  - INFECTION [None]
  - LEUKOPENIA [None]
  - PYREXIA [None]
